FAERS Safety Report 10307826 (Version 1)
Quarter: 2014Q3

REPORT INFORMATION
  Report Type: Spontaneous
  Country: US (occurrence: US)
  Receive Date: 20140716
  Receipt Date: 20140716
  Transmission Date: 20150326
  Serious: No
  Sender: FDA-Public Use
  Company Number: US-BAYER-2014-102133

PATIENT
  Age: 83 Year
  Sex: Female
  Weight: 66 kg

DRUGS (4)
  1. ALEVE [Suspect]
     Active Substance: NAPROXEN SODIUM
     Indication: BACK PAIN
     Dosage: 2 DF, BID
     Route: 048
  2. VITAMIN D [Concomitant]
     Active Substance: CHOLECALCIFEROL
  3. BAYER LOW DOSE [Suspect]
     Active Substance: ASPIRIN
     Dosage: 1 DF, QOD
     Route: 048
     Dates: start: 2004, end: 20140630
  4. CENTRUM SILVER [Concomitant]
     Active Substance: VITAMINS

REACTIONS (5)
  - Somnolence [Recovered/Resolved]
  - Drug ineffective [None]
  - Intentional product misuse [None]
  - Therapeutic response changed [None]
  - Extra dose administered [None]

NARRATIVE: CASE EVENT DATE: 20140701
